FAERS Safety Report 7784562-2 (Version None)
Quarter: 2011Q3

REPORT INFORMATION
  Report Type: 
  Country: None (occurrence: None)
  Receive Date: 20110928
  Receipt Date: 20110916
  Transmission Date: 20111222
  Serious: Yes (Other)
  Sender: FDA-Public Use
  Company Number: PHHY2011BR82954

PATIENT
  Age: 76 Year
  Sex: Female

DRUGS (10)
  1. ACETYLSALICYLIC ACID SRT [Suspect]
     Dosage: 100 MG, AFTER LUNCH
  2. CARVEDILOL [Concomitant]
     Dosage: 25 MG, 12/12 HOURS
  3. SIMVASTATIN [Concomitant]
     Dosage: 20 MG, UNK
  4. METFORMIN HCL [Suspect]
     Dosage: 1 DF, TID
  5. HYDROCHLOROTHIAZIDE [Concomitant]
     Dosage: 25 MG, UNK
  6. DIURETICS [Concomitant]
  7. SERTRALINE HYDROCHLORIDE [Concomitant]
     Dosage: 50 MG, UNK
  8. DIAMICRON MR [Concomitant]
     Dosage: 30 MG, TID
  9. LOSARTAN POTASSIUM [Concomitant]
     Dosage: 50 MG, 12/12 HOURS
  10. ANGIOTENSIN II ANTAGONISTS [Concomitant]

REACTIONS (6)
  - EYE DISORDER [None]
  - PROTEINURIA [None]
  - BREATH SOUNDS [None]
  - ORTHOPNOEA [None]
  - DYSPNOEA [None]
  - HYPERTENSION [None]
